FAERS Safety Report 18001719 (Version 2)
Quarter: 2020Q3

REPORT INFORMATION
  Report Type: Other
  Country: IT (occurrence: IT)
  Receive Date: 20200709
  Receipt Date: 20200721
  Transmission Date: 20201103
  Serious: Yes (Other)
  Sender: FDA-Public Use
  Company Number: IT-ROCHE-2637210

PATIENT
  Age: 18 Year
  Sex: Female

DRUGS (6)
  1. RITUXIMAB. [Suspect]
     Active Substance: RITUXIMAB
     Dosage: 2ND INFUSION
     Route: 042
     Dates: start: 2014
  2. RITUXIMAB. [Suspect]
     Active Substance: RITUXIMAB
     Dosage: 5TH INFUSION
     Route: 042
     Dates: start: 201710
  3. RITUXIMAB. [Suspect]
     Active Substance: RITUXIMAB
     Indication: NEPHROTIC SYNDROME
     Dosage: 1ST INFUSION
     Route: 042
     Dates: start: 201303
  4. RITUXIMAB. [Suspect]
     Active Substance: RITUXIMAB
     Dosage: 3RD INFUSION
     Route: 042
     Dates: start: 201506
  5. RITUXIMAB. [Suspect]
     Active Substance: RITUXIMAB
     Dosage: 4TH INFUSION
     Route: 042
     Dates: start: 201611
  6. RITUXIMAB. [Suspect]
     Active Substance: RITUXIMAB
     Dosage: 6TH INFUSION
     Route: 042
     Dates: start: 20191121

REACTIONS (3)
  - Product use in unapproved indication [Unknown]
  - Off label use [Unknown]
  - Hypokalaemia [Recovered/Resolved]
